FAERS Safety Report 7870300 (Version 3)
Quarter: 2013Q2

REPORT INFORMATION
  Report Type: Spontaneous
  Country: US (occurrence: US)
  Receive Date: 20110324
  Receipt Date: 20130429
  Transmission Date: 20140414
  Serious: Yes (Hospitalization, Other)
  Sender: FDA-Public Use
  Company Number: US-BAYER-2011-025224

PATIENT
  Age: 28 Year
  Sex: Female
  Weight: 61.68 kg

DRUGS (11)
  1. YAZ [Suspect]
     Indication: PREMENSTRUAL SYNDROME
  2. YAZ [Suspect]
     Indication: PREMENSTRUAL DYSPHORIC DISORDER
  3. YASMIN [Suspect]
     Indication: PREMENSTRUAL DYSPHORIC DISORDER
     Dosage: UNK
     Dates: start: 2000, end: 2008
  4. YASMIN [Suspect]
     Indication: PREMENSTRUAL SYNDROME
  5. OCELLA [Suspect]
     Indication: PREMENSTRUAL DYSPHORIC DISORDER
  6. OCELLA [Suspect]
     Indication: PREMENSTRUAL SYNDROME
  7. DILANTIN [Concomitant]
  8. DIURETICS [Concomitant]
     Indication: HYPERTENSION
  9. BENTYL [Concomitant]
     Indication: IRRITABLE BOWEL SYNDROME
  10. LOPRESSOR [Concomitant]
     Indication: HYPERTENSION
  11. NORVASC [Concomitant]
     Indication: HYPERTENSION

REACTIONS (5)
  - Gallbladder operation [None]
  - Cholecystitis chronic [None]
  - Gastric disorder [None]
  - Weight increased [None]
  - Heart rate increased [None]
